FAERS Safety Report 24671483 (Version 1)
Quarter: 2024Q4

REPORT INFORMATION
  Report Type: Spontaneous
  Country: CA (occurrence: CA)
  Receive Date: 20241127
  Receipt Date: 20241127
  Transmission Date: 20250114
  Serious: Yes (Other)
  Sender: TEVA
  Company Number: CA-TEVA-VS-3267197

PATIENT
  Age: 71 Year
  Sex: Male

DRUGS (1)
  1. METHOTREXATE SODIUM [Suspect]
     Active Substance: METHOTREXATE SODIUM
     Indication: Rheumatoid arthritis
     Route: 058

REACTIONS (5)
  - Lymphoma [Unknown]
  - Treatment failure [Unknown]
  - Contraindication to medical treatment [Unknown]
  - Off label use [Unknown]
  - Interstitial lung disease [Unknown]
